FAERS Safety Report 16089949 (Version 1)
Quarter: 2019Q2

REPORT INFORMATION
  Report Type: Spontaneous
  Country: US (occurrence: US)
  Receive Date: 20190319
  Receipt Date: 20190319
  Transmission Date: 20190711
  Serious: Yes (Other)
  Sender: FDA-Public Use
  Company Number: None

PATIENT
  Age: 73 Year
  Sex: Male
  Weight: 132.3 kg

DRUGS (2)
  1. NULOJIX [Suspect]
     Active Substance: BELATACEPT
     Indication: PROPHYLAXIS AGAINST TRANSPLANT REJECTION
     Dosage: ?          OTHER FREQUENCY:Q 4WEEKS;?
     Route: 042
  2. NULOJIX [Concomitant]
     Active Substance: BELATACEPT
     Dates: start: 20190307, end: 20190307

REACTIONS (2)
  - Skin lesion [None]
  - Necrosis [None]

NARRATIVE: CASE EVENT DATE: 20190319
